FAERS Safety Report 5339200-5 (Version None)
Quarter: 2007Q2

REPORT INFORMATION
  Report Type: 
  Country: None (occurrence: None)
  Receive Date: 20070330
  Receipt Date: 20060724
  Transmission Date: 20071010
  Serious: No
  Sender: FDA-Public Use
  Company Number: 2006AC01383

PATIENT

DRUGS (5)
  1. LISINOPRIL [Suspect]
  2. APC8015 [Concomitant]
  3. BEVACIZUMAB [Concomitant]
  4. ACETAMINOPHEN [Concomitant]
  5. DIPHENHYDRAMINE HCL [Concomitant]

REACTIONS (1)
  - ANGIOEDEMA [None]
